FAERS Safety Report 7936449-X (Version None)
Quarter: 2011Q4

REPORT INFORMATION
  Report Type: 
  Country: None (occurrence: None)
  Receive Date: 20111121
  Receipt Date: 20111110
  Transmission Date: 20120403
  Serious: Yes (Death)
  Sender: FDA-Public Use
  Company Number: AUR-APL-2011-05751

PATIENT
  Sex: Male

DRUGS (3)
  1. PIPERACILLIN AND TAZOBACTAM [Suspect]
     Indication: ANTIBIOTIC THERAPY
  2. MEROPENEM [Suspect]
     Indication: PRODUCT USED FOR UNKNOWN INDICATION
  3. TIGECYCLINE ( TIGECYCLINE ) [Concomitant]

REACTIONS (2)
  - DRUG INEFFECTIVE [None]
  - MALAISE [None]
